FAERS Safety Report 20973482 (Version 5)
Quarter: 2024Q3

REPORT INFORMATION
  Report Type: Report from Study
  Country: US (occurrence: US)
  Receive Date: 20220617
  Receipt Date: 20240927
  Transmission Date: 20241016
  Serious: No
  Sender: NOVARTIS
  Company Number: US-NOVARTISTESTPH-NVSC2022US139242

PATIENT
  Sex: Female

DRUGS (1)
  1. COSENTYX [Suspect]
     Active Substance: SECUKINUMAB
     Indication: Product used for unknown indication
     Dosage: UNK (INJECTION NOS)
     Route: 050

REACTIONS (3)
  - Rash [Unknown]
  - COVID-19 [Unknown]
  - Memory impairment [Unknown]
